FAERS Safety Report 6215542-6 (Version None)
Quarter: 2009Q2

REPORT INFORMATION
  Report Type: 
  Country: None (occurrence: None)
  Receive Date: 20090605
  Receipt Date: 20090527
  Transmission Date: 20091009
  Serious: Yes (Life-Threatening, Other)
  Sender: FDA-Public Use
  Company Number: US-RANBAXY-2009RR-21865

PATIENT
  Age: 29 Year
  Sex: Male

DRUGS (11)
  1. ACETAMINOPHEN [Suspect]
  2. ASPIRIN [Suspect]
     Dosage: 325 MG, UNK
  3. IBUPROFEN [Suspect]
     Dosage: 800 MG, UNK
  4. ACETAMINOPHEN, ASPIRIN AND CAFFEINE [Suspect]
     Dosage: 878.3 MG, UNK
  5. CAFFEINE [Suspect]
  6. NIACIN [Suspect]
  7. PARACETAMOL [Concomitant]
     Dosage: 32 MG, UNK
     Route: 048
  8. PARACETAMOL [Concomitant]
     Dosage: 64 MG, UNK
     Route: 048
  9. PARACETAMOL [Concomitant]
     Dosage: 128 MG, UNK
     Route: 048
  10. PARACETAMOL [Concomitant]
     Dosage: 325 MG, UNK
     Route: 048
  11. PARACETAMOL [Concomitant]
     Dosage: 650 MG, UNK
     Route: 048

REACTIONS (1)
  - ANAPHYLACTIC REACTION [None]
